FAERS Safety Report 9215172 (Version 1)
Quarter: 2013Q2

REPORT INFORMATION
  Report Type: Spontaneous
  Country: US (occurrence: US)
  Receive Date: 20130405
  Receipt Date: 20130405
  Transmission Date: 20140414
  Serious: No
  Sender: FDA-Public Use
  Company Number: US-BAYER-2013-043174

PATIENT
  Age: 84 Year
  Sex: Female
  Weight: 73.92 kg

DRUGS (14)
  1. ALEVE CAPLET [Suspect]
     Indication: ARTHRITIS
     Dosage: 2 DF, BID
     Route: 048
     Dates: start: 2012
  2. ACIPHEX [Concomitant]
  3. AMLODIPINE [Concomitant]
  4. BABY ASPIRIN [Concomitant]
     Indication: ISCHAEMIC HEART DISEASE PROPHYLAXIS
  5. ADOVAN [Concomitant]
  6. CARVEDILOL [Concomitant]
  7. CENTRUM SILVER [Concomitant]
  8. PRESERVISRON [Concomitant]
  9. MAGNESIUM [Concomitant]
  10. CLONIDINE [Concomitant]
  11. LOSARTAN [Concomitant]
  12. SYNTHROID [Concomitant]
  13. TRIAMTERENE [Concomitant]
  14. VITAMIN D [Concomitant]

REACTIONS (1)
  - Overdose [None]
